FAERS Safety Report 9895811 (Version 1)
Quarter: 2014Q1

REPORT INFORMATION
  Report Type: Spontaneous
  Country: US (occurrence: US)
  Receive Date: 20140213
  Receipt Date: 20140213
  Transmission Date: 20141002
  Serious: No
  Sender: FDA-Public Use
  Company Number: US-BRISTOL-MYERS SQUIBB COMPANY-19557529

PATIENT
  Age: 58 Year
  Sex: Female
  Weight: 70.29 kg

DRUGS (17)
  1. ABATACEPT SUBQ INJECTION 125MG/ML [Suspect]
     Dosage: 1DF=125MG/ML
     Route: 058
  2. FLEXERIL [Concomitant]
     Dosage: TAB
     Route: 048
  3. VITAMIN D [Concomitant]
     Dosage: 1DF=2000 UNITS, CAPSULE
     Route: 048
  4. VENTOLIN INHALER [Concomitant]
     Route: 045
  5. LOVAZA [Concomitant]
     Route: 048
  6. ADVAIR [Concomitant]
     Dosage: 1DF=115/21-UNITS NOS
  7. MULTIVITAMIN [Concomitant]
     Dosage: CAPSULE
     Route: 048
  8. MAGNESIUM [Concomitant]
     Dosage: CAPSULE
     Route: 048
  9. IBUPROFEN [Concomitant]
     Dosage: CAPSULE
     Route: 048
  10. HYDROCODONE [Concomitant]
     Dosage: HYDROCODONE SYP PE/CPM
     Route: 048
  11. NEXIUM [Concomitant]
     Dosage: CAPSULE
     Route: 048
  12. SYNTHROID [Concomitant]
     Dosage: TAB
     Route: 048
  13. KRILL OIL [Concomitant]
     Dosage: CAPSULE
     Route: 048
  14. FANAPT [Concomitant]
     Dosage: TAB
     Route: 048
  15. VOLTAREN [Concomitant]
     Dosage: TAB
     Route: 048
  16. PAMELOR [Concomitant]
     Dosage: CAPSULE
     Route: 048
  17. CALCIUM [Concomitant]
     Dosage: 1DF=500-UNITS NOS, TAB
     Route: 048

REACTIONS (5)
  - Asthma [Unknown]
  - Sinus congestion [Unknown]
  - Eye irritation [Unknown]
  - Eye inflammation [Unknown]
  - Anxiety [Unknown]
